FAERS Safety Report 5551524-5 (Version None)
Quarter: 2007Q4

REPORT INFORMATION
  Report Type: 
  Country: None (occurrence: None)
  Receive Date: 20071212
  Receipt Date: 20071026
  Transmission Date: 20080405
  Serious: Yes (Other)
  Sender: FDA-Public Use
  Company Number: ES-TYCO HEALTHCARE/MALLINCKRODT-T200701401

PATIENT

DRUGS (1)
  1. OPTIRAY 300 [Suspect]
     Dosage: 100 ML, SINGLE
     Route: 042
     Dates: start: 20070927, end: 20070927

REACTIONS (2)
  - DERMATITIS ALLERGIC [None]
  - URTICARIA [None]
